FAERS Safety Report 6686028-X (Version None)
Quarter: 2010Q2

REPORT INFORMATION
  Report Type: 
  Country: None (occurrence: None)
  Receive Date: 20100419
  Receipt Date: 20100409
  Transmission Date: 20101027
  Serious: Yes (Death, Hospitalization)
  Sender: FDA-Public Use
  Company Number: RU-MILLENNIUM PHARMACEUTICALS, INC.-2008-02009

PATIENT

DRUGS (7)
  1. VELCADE [Suspect]
     Indication: MULTIPLE MYELOMA
     Dosage: 2.3 MG, CYCLIC
     Route: 042
     Dates: start: 20071005, end: 20090213
  2. SODIUM CHLORIDE [Concomitant]
     Dosage: 0.9 %, UNK
     Dates: start: 20071001
  3. CERUCAL [Concomitant]
     Dates: start: 20071001
  4. APROTININ [Concomitant]
     Indication: TRANSAMINASES INCREASED
     Dates: start: 20071001
  5. DROTAVERINE [Concomitant]
     Indication: TRANSAMINASES INCREASED
     Dates: start: 20071001
  6. PROCAINE HYDROCHLORIDE INJ [Concomitant]
     Dates: start: 20071001
  7. ASCORBIC ACID [Concomitant]
     Dates: start: 20071001

REACTIONS (4)
  - ABDOMINAL PAIN UPPER [None]
  - DEATH [None]
  - MALAISE [None]
  - TRANSAMINASES INCREASED [None]
